FAERS Safety Report 6272774-9 (Version None)
Quarter: 2009Q3

REPORT INFORMATION
  Report Type: 
  Country: None (occurrence: None)
  Receive Date: 20090716
  Receipt Date: 20090716
  Transmission Date: 20100115
  Serious: Yes (Life-Threatening)
  Sender: FDA-Public Use
  Company Number: None

PATIENT
  Sex: Male
  Weight: 81.1939 kg

DRUGS (1)
  1. CELEBREX [Suspect]
     Indication: ARTHRITIS
     Dosage: 200 MG TWICE A DAY 1 MORN NIGHT
     Dates: start: 20000601

REACTIONS (4)
  - HEADACHE [None]
  - HYPOPHAGIA [None]
  - MALAISE [None]
  - MUSCULOSKELETAL DISORDER [None]
